FAERS Safety Report 6612101-8 (Version None)
Quarter: 2010Q1

REPORT INFORMATION
  Report Type: 
  Country: None (occurrence: None)
  Receive Date: 20100302
  Receipt Date: 20100302
  Transmission Date: 20100710
  Serious: Yes (Other)
  Sender: FDA-Public Use
  Company Number: None

PATIENT
  Sex: Male
  Weight: 75.2971 kg

DRUGS (2)
  1. TESTOSTERONE CYPIONATE [Suspect]
     Indication: HYPOGONADISM
     Dosage: 200 MCG EVERY OTHER WEEK IM
     Route: 030
     Dates: start: 20100111, end: 20100111
  2. TESTOSTERONE CYPIONATE [Suspect]
     Dates: start: 20100124, end: 20100124

REACTIONS (5)
  - ABSCESS [None]
  - CELLULITIS [None]
  - INJECTION SITE ERYTHEMA [None]
  - INJECTION SITE PAIN [None]
  - INJECTION SITE SWELLING [None]
